FAERS Safety Report 9335342 (Version 3)
Quarter: 2013Q3

REPORT INFORMATION
  Report Type: Spontaneous
  Country: TW (occurrence: TW)
  Receive Date: 20130606
  Receipt Date: 20130913
  Transmission Date: 20140515
  Serious: Yes (Death, Hospitalization)
  Sender: FDA-Public Use
  Company Number: TW-ROCHE-1231028

PATIENT
  Age: 66 Year
  Sex: Female

DRUGS (7)
  1. ACTEMRA [Suspect]
     Indication: RHEUMATOID ARTHRITIS
     Route: 042
     Dates: start: 20130208
  2. METISONE [Concomitant]
     Indication: RHEUMATOID ARTHRITIS
     Route: 048
     Dates: start: 20120919
  3. FOSAMAX [Concomitant]
     Indication: RHEUMATOID ARTHRITIS
     Route: 048
     Dates: start: 20100113
  4. FOSAMAX [Concomitant]
     Route: 048
     Dates: start: 20110413
  5. NORVASC [Concomitant]
     Indication: RHEUMATOID ARTHRITIS
     Route: 048
     Dates: start: 20100113
  6. CELEBREX [Concomitant]
     Indication: RHEUMATOID ARTHRITIS
     Route: 048
     Dates: start: 20090715
  7. ALPRAZOLAM [Concomitant]
     Indication: INSOMNIA
     Route: 048
     Dates: start: 20120410

REACTIONS (5)
  - Soft tissue infection [Fatal]
  - Septic shock [Fatal]
  - Pain in extremity [Not Recovered/Not Resolved]
  - Purpura [Not Recovered/Not Resolved]
  - Extremity necrosis [Not Recovered/Not Resolved]
